FAERS Safety Report 14034879 (Version 1)
Quarter: 2017Q4

REPORT INFORMATION
  Report Type: Spontaneous
  Country: US (occurrence: US)
  Receive Date: 20171003
  Receipt Date: 20171003
  Transmission Date: 20180321
  Serious: No
  Sender: FDA-Public Use
  Company Number: US-SA-2017SA063071

PATIENT
  Age: 65 Year
  Sex: Male
  Weight: 90.72 kg

DRUGS (11)
  1. FLOMAX [Concomitant]
     Active Substance: TAMSULOSIN HYDROCHLORIDE
     Indication: URINARY RETENTION
     Route: 065
     Dates: start: 2010
  2. MELOXICAM. [Concomitant]
     Active Substance: MELOXICAM
     Indication: PAIN
     Route: 065
     Dates: start: 2015
  3. CYMBALTA [Concomitant]
     Active Substance: DULOXETINE HYDROCHLORIDE
     Indication: PAIN
     Route: 065
     Dates: start: 2005
  4. PROVIGIL [Concomitant]
     Active Substance: MODAFINIL
     Indication: ASTHENIA
     Route: 065
     Dates: start: 201701
  5. SINGULAIR [Concomitant]
     Active Substance: MONTELUKAST SODIUM
     Indication: MULTIPLE ALLERGIES
     Route: 065
     Dates: start: 2016
  6. FOLIC ACID W/VITAMIN B12 [Concomitant]
     Route: 065
  7. ASA [Concomitant]
     Active Substance: ASPIRIN
     Indication: ANTICOAGULANT THERAPY
     Route: 065
     Dates: start: 2000
  8. VITAMIN B12 [Concomitant]
     Active Substance: CYANOCOBALAMIN
     Indication: ASTHENIA
     Route: 065
     Dates: start: 2016
  9. AUBAGIO [Suspect]
     Active Substance: TERIFLUNOMIDE
     Indication: MULTIPLE SCLEROSIS
     Route: 048
     Dates: start: 20170112
  10. ASPIRIN. [Concomitant]
     Active Substance: ASPIRIN
     Route: 065
  11. CYMBALTA [Concomitant]
     Active Substance: DULOXETINE HYDROCHLORIDE
     Indication: DEPRESSION
     Route: 065
     Dates: start: 2005

REACTIONS (4)
  - Hypertension [Not Recovered/Not Resolved]
  - Oedema peripheral [Not Recovered/Not Resolved]
  - Swelling [Unknown]
  - Oedema [Not Recovered/Not Resolved]

NARRATIVE: CASE EVENT DATE: 20170215
